FAERS Safety Report 13608152 (Version 2)
Quarter: 2017Q2

REPORT INFORMATION
  Report Type: Report from Study
  Country: CO (occurrence: CO)
  Receive Date: 20170602
  Receipt Date: 20170622
  Transmission Date: 20170830
  Serious: Yes (Hospitalization, Other)
  Sender: FDA-Public Use
  Company Number: CO-BRISTOL-MYERS SQUIBB COMPANY-BMS-2017-018164

PATIENT
  Age: 58 Year
  Sex: Female

DRUGS (2)
  1. NIVOLUMAB [Suspect]
     Active Substance: NIVOLUMAB
     Indication: URETERIC CANCER
     Dosage: 180 MG, EVERY 15 DAYS
     Route: 042
     Dates: start: 20170315
  2. NIVOLUMAB [Suspect]
     Active Substance: NIVOLUMAB
     Indication: PRODUCT USED FOR UNKNOWN INDICATION
     Dosage: 180 MG, EVERY 15 DAYS
     Route: 042
     Dates: start: 20170515, end: 20170519

REACTIONS (10)
  - Vocal cord paralysis [Recovering/Resolving]
  - Pain in extremity [Unknown]
  - Haematuria [Recovering/Resolving]
  - Pelvic pain [Unknown]
  - Oedema peripheral [Recovering/Resolving]
  - Back pain [Unknown]
  - Fatigue [Unknown]
  - Weight decreased [Unknown]
  - Malignant neoplasm progression [Unknown]
  - Off label use [Unknown]

NARRATIVE: CASE EVENT DATE: 20170615
